FAERS Safety Report 10156015 (Version 5)
Quarter: 2014Q4

REPORT INFORMATION
  Report Type: Report from Study
  Country: US (occurrence: US)
  Receive Date: 20140506
  Receipt Date: 20141217
  Transmission Date: 20150528
  Serious: Yes (Other)
  Sender: FDA-Public Use
  Company Number: US-BAXTER-2014BAX021886

PATIENT
  Age: 64 Year
  Sex: Female

DRUGS (4)
  1. GAMMAGARD LIQUID [Suspect]
     Active Substance: HUMAN IMMUNOGLOBULIN G
     Route: 058
     Dates: start: 201405
  2. LEVOFLOXACIN. [Suspect]
     Active Substance: LEVOFLOXACIN
     Indication: PNEUMONIA STREPTOCOCCAL
     Route: 048
     Dates: start: 20140426, end: 20140505
  3. GAMMAGARD LIQUID [Suspect]
     Active Substance: HUMAN IMMUNOGLOBULIN G
     Route: 058
  4. GAMMAGARD LIQUID [Suspect]
     Active Substance: HUMAN IMMUNOGLOBULIN G
     Indication: IMMUNODEFICIENCY COMMON VARIABLE
     Route: 058
     Dates: start: 2012, end: 201405

REACTIONS (12)
  - Cough [Recovering/Resolving]
  - Cystitis [Recovered/Resolved]
  - Lung infection pseudomonal [Not Recovered/Not Resolved]
  - Chills [Recovered/Resolved]
  - Pneumonia streptococcal [Recovering/Resolving]
  - Memory impairment [Not Recovered/Not Resolved]
  - Pain in extremity [Not Recovered/Not Resolved]
  - Drug ineffective [Recovering/Resolving]
  - Infection [Recovering/Resolving]
  - Mycobacterium avium complex infection [Recovered/Resolved]
  - Headache [Recovered/Resolved]
  - Sputum abnormal [Recovering/Resolving]

NARRATIVE: CASE EVENT DATE: 201305
